FAERS Safety Report 5866852-3 (Version None)
Quarter: 2008Q3

REPORT INFORMATION
  Report Type: 
  Country: None (occurrence: None)
  Receive Date: 20080902
  Receipt Date: 20080828
  Transmission Date: 20090109
  Serious: Yes (Other)
  Sender: FDA-Public Use
  Company Number: GB-ROCHE-583651

PATIENT
  Sex: Male
  Weight: 130.1 kg

DRUGS (3)
  1. ORLISTAT [Suspect]
     Indication: OBESITY
     Route: 048
     Dates: start: 20080725
  2. VOLTAREN [Concomitant]
     Route: 048
     Dates: start: 20080805
  3. CO-CODAMOL [Concomitant]
     Indication: ARTHRITIS
     Route: 048
     Dates: start: 19980101

REACTIONS (6)
  - DEPRESSED MOOD [None]
  - ILL-DEFINED DISORDER [None]
  - NERVE COMPRESSION [None]
  - PAIN [None]
  - SLEEP DISORDER [None]
  - SUICIDAL IDEATION [None]
